FAERS Safety Report 15752643 (Version 6)
Quarter: 2019Q2

REPORT INFORMATION
  Report Type: Spontaneous
  Country: PL (occurrence: PL)
  Receive Date: 20181221
  Receipt Date: 20190501
  Transmission Date: 20190711
  Serious: Yes (Death)
  Sender: FDA-Public Use
  Company Number: PL-PFIZER INC-2018521746

PATIENT
  Age: 8 Month
  Sex: Male

DRUGS (6)
  1. VFEND [Suspect]
     Active Substance: VORICONAZOLE
     Dosage: 6 MG/KG, 2X/DAY
     Route: 042
     Dates: end: 20110128
  2. VFEND [Suspect]
     Active Substance: VORICONAZOLE
     Indication: ANTIFUNGAL PROPHYLAXIS
     Dosage: 3 MG/KG, 2X/DAY
     Route: 048
  3. VFEND [Suspect]
     Active Substance: VORICONAZOLE
     Dosage: 6 MG/KG, 2X/DAY
     Route: 048
  4. CAMPATH [Concomitant]
     Active Substance: ALEMTUZUMAB
     Dosage: 3X0.2 MG/KG
  5. BUSILVEX [Concomitant]
     Active Substance: BUSULFAN
     Dosage: 4X4X1.0 MG/KG
     Route: 042
  6. FLUDARABINE [Concomitant]
     Active Substance: FLUDARABINE PHOSPHATE
     Dosage: 4X40 MG/M2
     Route: 042

REACTIONS (1)
  - Drug ineffective [Unknown]
